FAERS Safety Report 11541873 (Version 1)
Quarter: 2015Q3

REPORT INFORMATION
  Report Type: Spontaneous
  Country: US (occurrence: US)
  Receive Date: 20150923
  Receipt Date: 20150923
  Transmission Date: 20151125
  Serious: No
  Sender: FDA-Public Use
  Company Number: US-TARO-2015TAR00379

PATIENT
  Age: 3 Year
  Sex: Female
  Weight: 19.96 kg

DRUGS (2)
  1. LORATADINE SYRUP (LORATADINE ORAL SOLUTION USP) 5MG/5ML [Suspect]
     Active Substance: LORATADINE
     Indication: NASAL CONGESTION
     Dosage: 1 TSP, ONCE
     Route: 048
     Dates: start: 20150428, end: 20150428
  2. LORATADINE SYRUP (LORATADINE ORAL SOLUTION USP) 5MG/5ML [Suspect]
     Active Substance: LORATADINE
     Indication: RHINORRHOEA

REACTIONS (7)
  - Nasal congestion [Recovering/Resolving]
  - Diarrhoea [Recovered/Resolved]
  - Vulvovaginal discomfort [Recovering/Resolving]
  - Vulvovaginal erythema [Recovering/Resolving]
  - Abdominal pain upper [Recovering/Resolving]
  - Drug ineffective for unapproved indication [Recovering/Resolving]
  - Rhinorrhoea [Unknown]

NARRATIVE: CASE EVENT DATE: 20150428
